FAERS Safety Report 20459993 (Version 4)
Quarter: 2022Q1

REPORT INFORMATION
  Report Type: Other
  Country: CA (occurrence: None)
  Receive Date: 20220211
  Receipt Date: 20220224
  Transmission Date: 20220423
  Serious: Yes (Other)
  Sender: FDA-Public Use
  Company Number: CA-ROCHE-1588165

PATIENT
  Age: 64 Year
  Sex: Female
  Weight: 78 kg

DRUGS (11)
  1. RITUXAN [Suspect]
     Active Substance: RITUXIMAB
     Indication: Rheumatoid arthritis
     Dosage: LAST DOSE RECEIVED ON 26/JAN/2015 PREVIOUS RITUXAN INFUSION DATE: 12/FEB/2020
     Route: 042
     Dates: start: 20150112
  2. RITUXAN [Suspect]
     Active Substance: RITUXIMAB
     Route: 042
     Dates: start: 20190812
  3. DIPHENHYDRAMINE HYDROCHLORIDE [Concomitant]
     Active Substance: DIPHENHYDRAMINE HYDROCHLORIDE
     Indication: Premedication
     Route: 048
     Dates: start: 20150112
  4. ACETAMINOPHEN [Concomitant]
     Active Substance: ACETAMINOPHEN
     Indication: Premedication
     Route: 048
     Dates: start: 20150112
  5. METHYLPREDNISOLONE [Concomitant]
     Active Substance: METHYLPREDNISOLONE
     Indication: Premedication
     Route: 042
     Dates: start: 20150112
  6. METHOTREXATE [Concomitant]
     Active Substance: METHOTREXATE
  7. FOLIC ACID [Concomitant]
     Active Substance: FOLIC ACID
  8. NORVASC [Concomitant]
     Active Substance: AMLODIPINE BESYLATE
  9. PREDNISONE [Concomitant]
     Active Substance: PREDNISONE
  10. VITAMIN A [Concomitant]
     Active Substance: VITAMIN A
  11. CALCIUM [Concomitant]
     Active Substance: CALCIUM

REACTIONS (18)
  - Bradycardia [Unknown]
  - Arthropathy [Unknown]
  - Fatigue [Recovered/Resolved]
  - Nausea [Recovered/Resolved]
  - Blood pressure fluctuation [Unknown]
  - Cough [Not Recovered/Not Resolved]
  - Oropharyngeal pain [Not Recovered/Not Resolved]
  - Heart rate decreased [Unknown]
  - Blood pressure systolic increased [Unknown]
  - Hypotension [Unknown]
  - Dizziness [Unknown]
  - Blood pressure diastolic decreased [Unknown]
  - Blood pressure diastolic abnormal [Unknown]
  - Peripheral venous disease [Unknown]
  - Blood pressure systolic abnormal [Unknown]
  - Osteoarthritis [Unknown]
  - Fall [Unknown]
  - Femur fracture [Recovering/Resolving]

NARRATIVE: CASE EVENT DATE: 20180803
